FAERS Safety Report 8080429 (Version 2)
Quarter: 2013Q3

REPORT INFORMATION
  Report Type: Spontaneous
  Country: US (occurrence: US)
  Receive Date: 20110808
  Receipt Date: 20130806
  Transmission Date: 20140515
  Serious: Yes (Other)
  Sender: FDA-Public Use
  Company Number: US-ROCHE-778152

PATIENT
  Age: 20 Year
  Sex: Male
  Weight: 68 kg

DRUGS (2)
  1. ACCUTANE [Suspect]
     Indication: ACNE
     Route: 048
     Dates: start: 1999, end: 2000
  2. ACCUTANE [Suspect]
     Route: 048

REACTIONS (9)
  - Crohn^s disease [Unknown]
  - Inflammatory bowel disease [Unknown]
  - Stress [Unknown]
  - Colitis ulcerative [Unknown]
  - Depression [Unknown]
  - Forearm fracture [Unknown]
  - Lip dry [Unknown]
  - Hypersensitivity [Unknown]
  - Epistaxis [Unknown]
